FAERS Safety Report 21519756 (Version 1)
Quarter: 2022Q4

REPORT INFORMATION
  Report Type: Spontaneous
  Country: TR (occurrence: TR)
  Receive Date: 20221028
  Receipt Date: 20221028
  Transmission Date: 20230112
  Serious: Yes (Death, Other)
  Sender: FDA-Public Use
  Company Number: TR-MYLANLABS-2022M1118811

PATIENT
  Age: 64 Year
  Sex: Female

DRUGS (8)
  1. FLUOROURACIL [Suspect]
     Active Substance: FLUOROURACIL
     Indication: Pancreatic carcinoma
     Dosage: 400 MILLIGRAM/SQ. METER, Q2W,  FOR EVERY 2 WEEKS
     Route: 042
     Dates: start: 20200929
  2. FLUOROURACIL [Suspect]
     Active Substance: FLUOROURACIL
     Dosage: 2400 MILLIGRAM/SQ. METER, Q2W, FOR EVERY 2 WEEKS.
     Route: 042
     Dates: start: 2020
  3. OXALIPLATIN [Suspect]
     Active Substance: OXALIPLATIN
     Indication: Pancreatic carcinoma
     Dosage: 65 MILLIGRAM/SQ. METER, FOR EVERY 2 WEEKS
     Route: 042
     Dates: start: 20200929
  4. LEUCOVORIN [Suspect]
     Active Substance: LEUCOVORIN
     Indication: Pancreatic carcinoma
     Dosage: 400 MILLIGRAM/SQ. METER, Q2W, 400 MILLIGRAM/SQ. METER, FOR EVERY TWO WEEKS.
     Route: 042
     Dates: start: 20200929
  5. IRINOTECAN [Suspect]
     Active Substance: IRINOTECAN
     Indication: Pancreatic carcinoma
     Dosage: 135 MILLIGRAM/SQ. METER, Q2W, 135 MILLIGRAM/SQ. METER, FOR EVERY TWO WEEKS.
     Route: 042
     Dates: start: 20200929
  6. GEMCITABINE [Suspect]
     Active Substance: GEMCITABINE
     Indication: Pancreatic carcinoma
     Dosage: 1000 MILLIGRAM/SQ. METER, FOR EVERY 21 DAYS ON DAY 1 AND DAY 8
     Route: 065
  7. PACLITAXEL [Suspect]
     Active Substance: PACLITAXEL
     Indication: Pancreatic carcinoma
     Dosage: UNK
     Route: 065
  8. CAPECITABINE [Suspect]
     Active Substance: CAPECITABINE
     Indication: Pancreatic carcinoma
     Dosage: UNK
     Route: 065

REACTIONS (2)
  - Death [Fatal]
  - Drug ineffective [Unknown]
